FAERS Safety Report 8934156 (Version 1)
Quarter: 2012Q4

REPORT INFORMATION
  Report Type: 
  Country: US (occurrence: US)
  Receive Date: 20121129
  Receipt Date: 20121129
  Transmission Date: 20130627
  Serious: No
  Sender: FDA-Public Use
  Company Number: US-GLAXOSMITHKLINE-A0980810A

PATIENT
  Age: 73 Year
  Sex: Female

DRUGS (2)
  1. BUPROPION HYDROCHLORIDE [Suspect]
     Indication: DEPRESSION
     Dosage: 100MG Alternate days
     Route: 048
     Dates: start: 20120515, end: 20120607
  2. NO CONCURRENT MEDICATION [Concomitant]

REACTIONS (2)
  - Rash pruritic [Recovering/Resolving]
  - Fatigue [Unknown]
